FAERS Safety Report 5259762-6 (Version None)
Quarter: 2007Q1

REPORT INFORMATION
  Report Type: 
  Country: None (occurrence: None)
  Receive Date: 20070307
  Receipt Date: 20070226
  Transmission Date: 20070707
  Serious: Yes (Other)
  Sender: FDA-Public Use
  Company Number: 07H-163-0312099

PATIENT
  Age: 75 Year
  Sex: Female

DRUGS (1)
  1. BUPIVCAINE HCL 0.5% + EPI 1:200,000 INJECTION, UPS, CARPULE (BUPIVACAI [Suspect]
     Indication: NERVE BLOCK
     Dosage: MAXILLARY INJECTION
     Dates: start: 20070201, end: 20070201

REACTIONS (4)
  - DYSKINESIA [None]
  - HYPERSENSITIVITY [None]
  - NEUROLOGICAL SYMPTOM [None]
  - TREMOR [None]
